FAERS Safety Report 10424164 (Version 1)
Quarter: 2014Q3

REPORT INFORMATION
  Report Type: Spontaneous
  Country: US (occurrence: None)
  Receive Date: 20140722
  Receipt Date: 20140722
  Transmission Date: 20150326
  Serious: No
  Sender: FDA-Public Use
  Company Number: 163-10004-14052039

PATIENT
  Age: 68 Year
  Sex: Female
  Weight: 113.4 kg

DRUGS (10)
  1. OTEZLA [Suspect]
     Active Substance: APREMILAST
     Indication: PSORIATIC ARTHROPATHY
     Dosage: 30 MG, 2 IN 1 D, PO
     Route: 048
     Dates: start: 20140418, end: 20140422
  2. AMBIEN (ZOLPIDEM TARTRATE) (UNKNOWN) [Concomitant]
  3. CELEBREX [Concomitant]
     Active Substance: CELECOXIB
  4. PREMARIN (ESTROGENS CONJUGATED) (UNKNOWN) [Concomitant]
  5. CYMBALTA (DULOXETINE HYDROCHLORIDE) (UNKNOWN) [Concomitant]
  6. HYDROCODONE (EYDROCODONE) (UNKNOWN) [Concomitant]
  7. HYDRALAZINE (HYDRALAZINE) (UNKNOWN) [Concomitant]
  8. BYSTOLIC (NEBIVOLOL HYDROCHLORIDE) (UNKNOWN) [Concomitant]
  9. LASIX [Concomitant]
     Active Substance: FUROSEMIDE
  10. NEXIUM (ESOMEPRAZOLE) (UNKNOWN) [Concomitant]

REACTIONS (2)
  - Diarrhoea [None]
  - Nausea [None]

NARRATIVE: CASE EVENT DATE: 20140423
